FAERS Safety Report 12220636 (Version 1)
Quarter: 2016Q1

REPORT INFORMATION
  Report Type: Spontaneous
  Country: US (occurrence: None)
  Receive Date: 20160329
  Receipt Date: 20160329
  Transmission Date: 20160526
  Serious: No
  Sender: FDA-Public Use
  Company Number: None

PATIENT
  Age: 69 Year
  Sex: Female

DRUGS (1)
  1. PRALUENT [Suspect]
     Active Substance: ALIROCUMAB
     Indication: HYPERLIPIDAEMIA
     Route: 058
     Dates: start: 20160106

REACTIONS (5)
  - Muscular weakness [None]
  - Blood pressure increased [None]
  - Pruritus [None]
  - Agitation [None]
  - Tremor [None]

NARRATIVE: CASE EVENT DATE: 20160328
